FAERS Safety Report 7259662-6 (Version None)
Quarter: 2011Q1

REPORT INFORMATION
  Report Type: 
  Country: None (occurrence: None)
  Receive Date: 20110130
  Receipt Date: 20101001
  Transmission Date: 20110831
  Serious: No
  Sender: FDA-Public Use
  Company Number: US-ABBOTT-10P-163-0652555-00

PATIENT
  Age: 58 Year
  Sex: Female

DRUGS (5)
  1. HUMIRA [Suspect]
     Indication: PSORIASIS
     Route: 058
     Dates: start: 20100529, end: 20100701
  2. EFFEXOR XR [Concomitant]
     Indication: DEPRESSION
     Dosage: 150 MG DAILY
     Route: 048
  3. HUMIRA [Suspect]
     Dates: start: 20100903
  4. LISINOPRIL [Concomitant]
     Indication: HYPERTENSION
     Dosage: 10 MG DAILY
     Route: 048
  5. MELOXICAM [Concomitant]
     Indication: ARTHRALGIA
     Dosage: 15 MG DAILY

REACTIONS (6)
  - OEDEMA PERIPHERAL [None]
  - OEDEMA [None]
  - DRUG INEFFECTIVE [None]
  - REBOUND PSORIASIS [None]
  - GASTROOESOPHAGEAL REFLUX DISEASE [None]
  - ARTHRALGIA [None]
